FAERS Safety Report 10071363 (Version 1)
Quarter: 2014Q2

REPORT INFORMATION
  Report Type: Spontaneous
  Country: AR (occurrence: AR)
  Receive Date: 20140410
  Receipt Date: 20140410
  Transmission Date: 20141212
  Serious: Yes (Other)
  Sender: FDA-Public Use
  Company Number: PHHY2014AR043743

PATIENT
  Sex: Male

DRUGS (4)
  1. EXELON [Suspect]
     Indication: PARKINSON^S DISEASE
     Dosage: 1 DF, DAILY
     Route: 048
  2. EXELON [Suspect]
     Indication: DEMENTIA ALZHEIMER^S TYPE
  3. EXELON PATCH [Suspect]
     Indication: PARKINSON^S DISEASE
     Dosage: 4.6 MG, 1 PATCH OF 5CM2 DAILY
     Route: 062
  4. EXELON PATCH [Suspect]
     Indication: DEMENTIA ALZHEIMER^S TYPE

REACTIONS (6)
  - Small intestinal haemorrhage [Unknown]
  - Disease progression [Unknown]
  - Dysphagia [Unknown]
  - Weight decreased [Unknown]
  - Movement disorder [Unknown]
  - Wrong technique in drug usage process [Unknown]
